FAERS Safety Report 4900728-0 (Version None)
Quarter: 2006Q1

REPORT INFORMATION
  Report Type: 
  Country: None (occurrence: None)
  Receive Date: 20060201
  Receipt Date: 20060124
  Transmission Date: 20060701
  Serious: Yes (Death)
  Sender: FDA-Public Use
  Company Number: 2006JP000158

PATIENT
  Age: 34 Year
  Sex: Male
  Weight: 94.3 kg

DRUGS (10)
  1. PROGRAF [Suspect]
     Indication: LIVER TRANSPLANT
     Dosage: BID, ORAL
     Route: 048
     Dates: start: 20051210, end: 20060113
  2. CELLCEPT [Concomitant]
  3. PREDNISOLONE [Concomitant]
  4. SOLU-MEDROL [Concomitant]
  5. SPANIDIN (GUSPERIMUS HYDROCHLORIDE) INJECTION [Concomitant]
  6. VALIXA (VALGANCICLOVIR) [Concomitant]
  7. BAKTAR (SULFAMETHOXAZOLE, TRIMETHOPRIM) TABLET [Concomitant]
  8. URSO (URSODEOXYCHOLIC ACID) PER ORAL NOS [Concomitant]
  9. PARIET (RABEPRAZOLE SODIUM) PER ORAL NOS [Concomitant]
  10. GRAN (FILGRASTIM) INJECTION [Concomitant]

REACTIONS (11)
  - ACIDOSIS [None]
  - CARDIAC ARREST [None]
  - COMPLICATIONS OF TRANSPLANTED LIVER [None]
  - DEPRESSED LEVEL OF CONSCIOUSNESS [None]
  - HAEMODIALYSIS [None]
  - HEPATIC ARTERY OCCLUSION [None]
  - LIVER TRANSPLANT REJECTION [None]
  - PANCYTOPENIA [None]
  - RENAL FAILURE [None]
  - RESPIRATORY DISORDER [None]
  - THROMBOTIC THROMBOCYTOPENIC PURPURA [None]
